FAERS Safety Report 19846903 (Version 1)
Quarter: 2021Q3

REPORT INFORMATION
  Report Type: Spontaneous
  Country: US (occurrence: US)
  Receive Date: 20210917
  Receipt Date: 20210917
  Transmission Date: 20211014
  Serious: Yes (Death)
  Sender: FDA-Public Use
  Company Number: None

PATIENT
  Sex: Female
  Weight: 73.48 kg

DRUGS (14)
  1. CHOLECALCIFEROL [Concomitant]
     Active Substance: CHOLECALCIFEROL
  2. LORAZEPAM. [Concomitant]
     Active Substance: LORAZEPAM
  3. BITTER MELON [Concomitant]
  4. CALCIUM CARBONATE. [Concomitant]
     Active Substance: CALCIUM CARBONATE
  5. MELATIN [Concomitant]
  6. TURMERIC [Concomitant]
     Active Substance: HERBALS\TURMERIC
  7. ASCORBIC ACID. [Concomitant]
     Active Substance: ASCORBIC ACID
  8. ASHWAGANDHA [Concomitant]
     Active Substance: HERBALS
  9. PERCOCET [Concomitant]
     Active Substance: ACETAMINOPHEN\OXYCODONE HYDROCHLORIDE
  10. IBRANCE [Suspect]
     Active Substance: PALBOCICLIB
     Indication: BREAST CANCER
     Dosage: ?          OTHER FREQUENCY:QD 21 OF 28 DAYS;?
     Route: 048
  11. FASLODEX [Concomitant]
     Active Substance: FULVESTRANT
  12. XGEVA [Concomitant]
     Active Substance: DENOSUMAB
  13. MULTI COMPLETE [Concomitant]
  14. MODIFIED CITRUS PECTIN [Concomitant]

REACTIONS (1)
  - Death [None]
